FAERS Safety Report 21522171 (Version 3)
Quarter: 2022Q4

REPORT INFORMATION
  Report Type: Spontaneous
  Country: UA (occurrence: None)
  Receive Date: 20221028
  Receipt Date: 20221128
  Transmission Date: 20230113
  Serious: Yes (Death, Hospitalization)
  Sender: FDA-Public Use
  Company Number: 2022A358567

PATIENT
  Age: 69 Year
  Sex: Male

DRUGS (7)
  1. BRILINTA [Suspect]
     Active Substance: TICAGRELOR
     Indication: Acute coronary syndrome
     Route: 048
     Dates: start: 20221016, end: 20221024
  2. ASPIRIN [Concomitant]
     Active Substance: ASPIRIN
     Route: 065
  3. ZOLOPANT [Concomitant]
     Dosage: 1 TABLET, 40 MINUTES BEFORE BREAKFAST
  4. ROMESTIN [Concomitant]
     Dosage: FOR 2 TABLETS AFTER DINNER
  5. RENIAL [Concomitant]
     Dosage: TABLETS, FOR 1 TABLET
  6. BISOPROLOL [Concomitant]
     Active Substance: BISOPROLOL
     Dosage: TABLETS, FOR 1/2 TABLET
  7. RAMIPRIL [Concomitant]
     Active Substance: RAMIPRIL
     Dosage: TABLETS, FOR 1/4 TABLET

REACTIONS (1)
  - Myocardial infarction [Fatal]

NARRATIVE: CASE EVENT DATE: 20221025
